FAERS Safety Report 8584954-8 (Version None)
Quarter: 2012Q3

REPORT INFORMATION
  Report Type: 
  Country: None (occurrence: None)
  Receive Date: 20120810
  Receipt Date: 20120803
  Transmission Date: 20120928
  Serious: Yes (Other)
  Sender: FDA-Public Use
  Company Number: US-JNJFOC-20120611023

PATIENT
  Sex: Female
  Weight: 71.67 kg

DRUGS (2)
  1. LEVAQUIN [Suspect]
     Indication: PRODUCT USED FOR UNKNOWN INDICATION
     Route: 065
     Dates: start: 20010101, end: 20010101
  2. FLOVENT [Concomitant]
     Indication: ASTHMA
     Route: 065

REACTIONS (4)
  - BLOOD URINE PRESENT [None]
  - ASTHMA [None]
  - ARRHYTHMIA [None]
  - HYPERTENSION [None]
